FAERS Safety Report 7291127-8 (Version None)
Quarter: 2011Q1

REPORT INFORMATION
  Report Type: 
  Country: None (occurrence: None)
  Receive Date: 20110214
  Receipt Date: 20110209
  Transmission Date: 20110831
  Serious: Yes (Hospitalization)
  Sender: FDA-Public Use
  Company Number: IT-PFIZER INC-2011029765

PATIENT
  Age: 31 Year
  Sex: Female

DRUGS (2)
  1. DOSTINEX [Suspect]
     Indication: ADENOMA BENIGN
     Dosage: 0.5 MG, ALTERNATE DAY
     Route: 048
     Dates: start: 20110125, end: 20110201
  2. DEPAKENE [Suspect]
     Indication: EPILEPSY
     Dosage: 200 MG DAILY
     Route: 048
     Dates: start: 20100101, end: 20110205

REACTIONS (1)
  - ANTEPARTUM HAEMORRHAGE [None]
